FAERS Safety Report 8499266-0 (Version None)
Quarter: 2012Q2

REPORT INFORMATION
  Report Type: 
  Country: None (occurrence: None)
  Receive Date: 20120405
  Receipt Date: 20110324
  Transmission Date: 20120825
  Serious: Yes (Hospitalization)
  Sender: FDA-Public Use
  Company Number: PHHY2010US89486

PATIENT
  Age: 54 Year
  Sex: Female

DRUGS (6)
  1. RECLAST [Suspect]
     Indication: OSTEOPOROSIS
     Dosage: 5 MG, INTRAVENOUS
     Route: 042
     Dates: start: 20101207
  2. EFFEXOR [Concomitant]
  3. OMEPRAZOLE [Concomitant]
  4. GLUCOSAMINE (GLUCOSAMINE) [Concomitant]
  5. FISH OIL (FISH OIL) [Concomitant]
  6. VITAMIN D [Concomitant]

REACTIONS (3)
  - PAIN [None]
  - ABDOMINAL PAIN [None]
  - HEADACHE [None]
